FAERS Safety Report 6311883-2 (Version None)
Quarter: 2009Q3

REPORT INFORMATION
  Report Type: 
  Country: None (occurrence: None)
  Receive Date: 20090817
  Receipt Date: 20090810
  Transmission Date: 20100115
  Serious: Yes (Other)
  Sender: FDA-Public Use
  Company Number: US-MERCK-0908USA01749

PATIENT
  Age: 59 Year
  Sex: Male

DRUGS (2)
  1. ZETIA [Suspect]
     Indication: HYPERLIPIDAEMIA
     Route: 048
  2. ATORVASTATIN [Suspect]
     Indication: HYPERLIPIDAEMIA
     Route: 065

REACTIONS (2)
  - AMYOTROPHIC LATERAL SCLEROSIS [None]
  - MYALGIA [None]
